FAERS Safety Report 8846029 (Version 1)
Quarter: 2012Q4

REPORT INFORMATION
  Report Type: 
  Country: US (occurrence: US)
  Receive Date: 20121017
  Receipt Date: 20121017
  Transmission Date: 20130627
  Serious: No
  Sender: FDA-Public Use
  Company Number: US-VERTEX PHARMACEUTICAL INC.-2012-022553

PATIENT
  Sex: Female

DRUGS (3)
  1. INCIVEK [Suspect]
     Indication: HEPATITIS C
     Dosage: 750 mg, tid
     Dates: start: 20120711, end: 20121003
  2. PEGASYS [Suspect]
     Dosage: 180 mcg qw
     Dates: start: 20120711
  3. RIBAVIRIN [Suspect]
     Dosage: 1000 mg, qd
     Dates: start: 20120711

REACTIONS (1)
  - Pruritus [Not Recovered/Not Resolved]
